FAERS Safety Report 9517034 (Version 2)
Quarter: 2013Q4

REPORT INFORMATION
  Report Type: Spontaneous
  Country: US (occurrence: US)
  Receive Date: 20130911
  Receipt Date: 20131014
  Transmission Date: 20140711
  Serious: Yes (Other)
  Sender: FDA-Public Use
  Company Number: US-PFIZER INC-2013261229

PATIENT
  Age: 45 Year
  Sex: Female
  Weight: 65.76 kg

DRUGS (3)
  1. LYRICA [Suspect]
     Indication: FIBROMYALGIA
     Dosage: 150 MG, 2X/DAY
     Dates: start: 2010, end: 201305
  2. TRAMADOL [Concomitant]
     Indication: FIBROMYALGIA
     Dosage: 50 MG, DAILY
  3. SAVELLA [Concomitant]
     Indication: FIBROMYALGIA
     Dosage: 50 MG, DAILY

REACTIONS (6)
  - Drug withdrawal syndrome [Recovered/Resolved]
  - Bedridden [Recovered/Resolved]
  - Abdominal pain upper [Unknown]
  - Dizziness [Recovered/Resolved]
  - Nausea [Recovered/Resolved]
  - Fatigue [Recovered/Resolved]
